FAERS Safety Report 20908602 (Version 1)
Quarter: 2022Q2

REPORT INFORMATION
  Report Type: Spontaneous
  Country: FR (occurrence: FR)
  Receive Date: 20220603
  Receipt Date: 20220603
  Transmission Date: 20220720
  Serious: Yes (Life-Threatening)
  Sender: FDA-Public Use
  Company Number: None

PATIENT
  Age: 84 Year
  Sex: Male

DRUGS (2)
  1. PAROXETINE HYDROCHLORIDE [Suspect]
     Active Substance: PAROXETINE HYDROCHLORIDE
     Indication: Depression
     Dosage: UNIT DOSE : 1 DOSAGE FORMS,
     Route: 048
     Dates: end: 20220414
  2. KARDEGIC [Suspect]
     Active Substance: ASPIRIN DL-LYSINE
     Indication: Carotid artery stenosis
     Dosage: UNIT DOSE AND UNIT STRENGTH : 75 MG
     Route: 048
     Dates: end: 20220414

REACTIONS (1)
  - Cerebral haematoma [Not Recovered/Not Resolved]

NARRATIVE: CASE EVENT DATE: 20220414
